FAERS Safety Report 25520277 (Version 1)
Quarter: 2025Q3

REPORT INFORMATION
  Report Type: Spontaneous
  Country: CN (occurrence: CN)
  Receive Date: 20250704
  Receipt Date: 20250704
  Transmission Date: 20251021
  Serious: Yes (Other)
  Sender: MERCK SHARP & DOHME LLC
  Company Number: CN-009507513-2301159

PATIENT
  Age: 82 Year
  Sex: Male

DRUGS (1)
  1. INVANZ [Suspect]
     Active Substance: ERTAPENEM SODIUM
     Indication: Septic shock
     Route: 041
     Dates: start: 20250620, end: 20250621

REACTIONS (2)
  - Septic shock [Unknown]
  - Epilepsy [Unknown]

NARRATIVE: CASE EVENT DATE: 20250601
